FAERS Safety Report 17512698 (Version 1)
Quarter: 2020Q1

REPORT INFORMATION
  Report Type: Spontaneous
  Country: US (occurrence: US)
  Receive Date: 20200307
  Receipt Date: 20200307
  Transmission Date: 20200409
  Serious: No
  Sender: FDA-Public Use
  Company Number: US-GALDERMA-US19057470

PATIENT
  Sex: Female

DRUGS (1)
  1. DIFFERIN [Suspect]
     Active Substance: ADAPALENE
     Indication: ACNE
     Route: 061

REACTIONS (4)
  - Rash papular [Unknown]
  - Dry skin [Unknown]
  - Erythema [Unknown]
  - Acne [Unknown]

NARRATIVE: CASE EVENT DATE: 2019
